FAERS Safety Report 17037284 (Version 1)
Quarter: 2019Q4

REPORT INFORMATION
  Report Type: Spontaneous
  Country: US (occurrence: US)
  Receive Date: 20191115
  Receipt Date: 20191115
  Transmission Date: 20200122
  Serious: No
  Sender: FDA-Public Use
  Company Number: US-ASTRAZENECA-2019SF52210

PATIENT
  Sex: Male
  Weight: 99.8 kg

DRUGS (1)
  1. SYMBICORT [Suspect]
     Active Substance: BUDESONIDE\FORMOTEROL FUMARATE DIHYDRATE
     Indication: LUNG DISORDER
     Dosage: 80/4.5 MCG 120 INHALATIONS
     Route: 055
     Dates: start: 20191021

REACTIONS (2)
  - Malaise [Unknown]
  - Wrong technique in device usage process [Unknown]
